FAERS Safety Report 15367224 (Version 7)
Quarter: 2018Q4

REPORT INFORMATION
  Report Type: Report from Study
  Country: None (occurrence: BE)
  Receive Date: 20180910
  Receipt Date: 20181221
  Transmission Date: 20190204
  Serious: Yes (Hospitalization)
  Sender: FDA-Public Use
  Company Number: BE-ABBVIE-18S-013-2473916-00

PATIENT
  Sex: Male

DRUGS (7)
  1. DUODOPA [Suspect]
     Active Substance: CARBIDOPA\LEVODOPA
     Dosage: DOSES CONTINUOUSLY MONITORED AND ADAPTED
     Route: 050
     Dates: start: 20100209, end: 20180817
  2. DUODOPA [Suspect]
     Active Substance: CARBIDOPA\LEVODOPA
     Dosage: MD= 1ML, CD= 3.7ML/HR DURING 16HRS , ED= 2ML
     Route: 050
     Dates: start: 20180903, end: 20181009
  3. DUODOPA [Suspect]
     Active Substance: CARBIDOPA\LEVODOPA
     Dosage: MD=0.3ML CD=2.8ML/HR DURING 16HRS ED=0ML
     Route: 050
     Dates: start: 20181023, end: 20181107
  4. DUODOPA [Suspect]
     Active Substance: CARBIDOPA\LEVODOPA
     Indication: PARKINSON^S DISEASE
     Dosage: MD= 5.5ML, CD= 4.3ML/HR DURING 16HRS, ED= 2.5ML
     Route: 050
     Dates: start: 20100208, end: 20100209
  5. DUODOPA [Suspect]
     Active Substance: CARBIDOPA\LEVODOPA
     Dosage: MD=0.3ML, CD=3.7ML/HR DURING 16HRS, ED=2ML
     Route: 050
     Dates: start: 20181009, end: 20181023
  6. DUODOPA [Suspect]
     Active Substance: CARBIDOPA\LEVODOPA
     Dosage: CD=2.8ML/HR DURING 16HRS
     Route: 050
     Dates: start: 20181107
  7. DUODOPA [Suspect]
     Active Substance: CARBIDOPA\LEVODOPA
     Dosage: MD= 1ML, CD= 3.2ML/HR DURING 16HRS, ED= 2ML
     Route: 050
     Dates: start: 20180817, end: 20180903

REACTIONS (12)
  - Rectal haemorrhage [Unknown]
  - Intestinal perforation [Unknown]
  - Dyskinesia [Not Recovered/Not Resolved]
  - Blood pressure decreased [Unknown]
  - Ulcer [Unknown]
  - Device dislocation [Recovered/Resolved]
  - Faecaloma [Unknown]
  - Intestinal obstruction [Unknown]
  - Intussusception [Unknown]
  - Mobility decreased [Unknown]
  - Intentional medical device removal by patient [Unknown]
  - Haemoglobin decreased [Unknown]

NARRATIVE: CASE EVENT DATE: 2018
